FAERS Safety Report 17401801 (Version 1)
Quarter: 2020Q1

REPORT INFORMATION
  Report Type: Spontaneous
  Country: IN (occurrence: IN)
  Receive Date: 20200211
  Receipt Date: 20200211
  Transmission Date: 20200409
  Serious: Yes (Death, Hospitalization, Other)
  Sender: FDA-Public Use
  Company Number: IN-CASPER PHARMA LLC-2020CAS000066

PATIENT
  Age: 45 Year
  Sex: Male

DRUGS (4)
  1. PIPERACILLIN?TAZOBACTAM [Concomitant]
     Indication: ASCITES
  2. BISMUTH, METRONIDAZOLE, TETRACYCLIN [Suspect]
     Active Substance: BISMUTH SUBSALICYLATE\METRONIDAZOLE\TETRACYCLINE HYDROCHLORIDE
     Indication: ASCITES
  3. PIPERACILLIN?TAZOBACTAM [Concomitant]
     Indication: LIVER ABSCESS
     Dosage: 2.25 GRAM, QID
     Route: 065
  4. BISMUTH, METRONIDAZOLE, TETRACYCLIN [Suspect]
     Active Substance: BISMUTH SUBSALICYLATE\METRONIDAZOLE\TETRACYCLINE HYDROCHLORIDE
     Indication: LIVER ABSCESS
     Dosage: 800 MILLIGRAM, TID
     Route: 042

REACTIONS (3)
  - Toxic encephalopathy [Fatal]
  - Hypoxia [Fatal]
  - Cardiac arrest [Fatal]
